FAERS Safety Report 9377976 (Version 1)
Quarter: 2013Q3

REPORT INFORMATION
  Report Type: Spontaneous
  Country: AU (occurrence: AU)
  Receive Date: 20130701
  Receipt Date: 20130701
  Transmission Date: 20140515
  Serious: Yes (Hospitalization)
  Sender: FDA-Public Use
  Company Number: AU-ELI_LILLY_AND_COMPANY-AU201306007164

PATIENT
  Sex: Female

DRUGS (2)
  1. ZYPREXA [Suspect]
     Indication: PSYCHOTIC DISORDER
  2. LITHIUM [Concomitant]
     Indication: PSYCHOTIC DISORDER

REACTIONS (3)
  - Agitation [Unknown]
  - Malaise [Unknown]
  - Drug hypersensitivity [Unknown]
